FAERS Safety Report 17072306 (Version 1)
Quarter: 2019Q4

REPORT INFORMATION
  Report Type: Spontaneous
  Country: US (occurrence: US)
  Receive Date: 20191125
  Receipt Date: 20191125
  Transmission Date: 20200122
  Serious: Yes (Death, Hospitalization)
  Sender: FDA-Public Use
  Company Number: US-ASTRAZENECA-2019SF68294

PATIENT
  Age: 70 Year
  Sex: Male

DRUGS (1)
  1. IMFINZI [Suspect]
     Active Substance: DURVALUMAB
     Indication: NON-SMALL CELL LUNG CANCER
     Dosage: UNKNOWN
     Route: 042

REACTIONS (5)
  - Lung disorder [Unknown]
  - Cardiac disorder [Unknown]
  - Myocardial infarction [Fatal]
  - Vesical fistula [Unknown]
  - Colitis [Unknown]
